FAERS Safety Report 16979368 (Version 1)
Quarter: 2019Q4

REPORT INFORMATION
  Report Type: Spontaneous
  Country: PT (occurrence: PT)
  Receive Date: 20191031
  Receipt Date: 20191031
  Transmission Date: 20200122
  Serious: Yes (Other)
  Sender: FDA-Public Use
  Company Number: PT-FRESENIUS KABI-FK201911949

PATIENT
  Age: 37 Year
  Sex: Male

DRUGS (1)
  1. PACLITAXEL (MANUFACTURER UNKNOWN) [Suspect]
     Active Substance: PACLITAXEL
     Indication: KAPOSI^S SARCOMA
     Dosage: 8 CYCLES
     Route: 065

REACTIONS (3)
  - Disease progression [Not Recovered/Not Resolved]
  - Metastasis [Not Recovered/Not Resolved]
  - Sepsis [Not Recovered/Not Resolved]
